FAERS Safety Report 16100438 (Version 1)
Quarter: 2019Q1

REPORT INFORMATION
  Report Type: Spontaneous
  Country: RU (occurrence: RU)
  Receive Date: 20190321
  Receipt Date: 20190321
  Transmission Date: 20190418
  Serious: Yes (Hospitalization, Other)
  Sender: FDA-Public Use
  Company Number: RU-SA-2019SA072686

PATIENT
  Age: 34 Year
  Sex: Male
  Weight: 58 kg

DRUGS (5)
  1. LANTUS [Concomitant]
     Active Substance: INSULIN GLARGINE
     Indication: TYPE 1 DIABETES MELLITUS
     Dosage: 12 U, QD
     Route: 058
     Dates: start: 2009
  2. L-THYROXINE [LEVOTHYROXINE] [Concomitant]
     Indication: THYROIDECTOMY
     Dosage: 150 MG, 1 TIME IN THE MORNING
     Route: 048
     Dates: start: 2009
  3. TOUJEO [Suspect]
     Active Substance: INSULIN GLARGINE
     Indication: TYPE 1 DIABETES MELLITUS
     Dosage: 34 U, QD
     Route: 058
  4. LANTUS [Concomitant]
     Active Substance: INSULIN GLARGINE
     Dosage: 12 U, QD
     Route: 058
     Dates: start: 20190310
  5. NOVORAPID [Concomitant]
     Active Substance: INSULIN ASPART
     Indication: TYPE 1 DIABETES MELLITUS
     Dosage: 8 IU IN MORNING +8 IU AT LUNCH +8 IU IN EVENING
     Route: 058
     Dates: start: 2009

REACTIONS (8)
  - Ketoacidosis [Recovered/Resolved]
  - Blood pressure increased [Recovered/Resolved]
  - Ketoacidosis [Recovered/Resolved]
  - Hyperglycaemia [Recovered/Resolved]
  - Blood pressure increased [Recovered/Resolved]
  - Tachycardia [Recovered/Resolved]
  - Hyperhidrosis [Recovered/Resolved]
  - Hyperglycaemia [Recovered/Resolved]

NARRATIVE: CASE EVENT DATE: 20181201
